FAERS Safety Report 9159186 (Version 1)
Quarter: 2013Q1

REPORT INFORMATION
  Report Type: Spontaneous
  Country: FR (occurrence: None)
  Receive Date: 20130213
  Receipt Date: 20130213
  Transmission Date: 20140127
  Serious: Yes (Hospitalization)
  Sender: FDA-Public Use
  Company Number: DSM-2013-00168

PATIENT
  Age: 56 Year
  Sex: Female

DRUGS (3)
  1. COOLMETEC [Suspect]
     Indication: HYPERTENSION
     Route: 048
     Dates: end: 201105
  2. LEXOMIL [Suspect]
     Indication: HYPERTENSION
     Route: 048
     Dates: start: 2008, end: 201105
  3. ASPIRIN (ACETYLSALICYCLIC ACID) (ACETYLSALICYCLIC ACID) [Concomitant]

REACTIONS (1)
  - Hepatitis acute [None]
